FAERS Safety Report 5655681-1 (Version None)
Quarter: 2008Q1

REPORT INFORMATION
  Report Type: 
  Country: None (occurrence: None)
  Receive Date: 20080307
  Receipt Date: 20080222
  Transmission Date: 20080703
  Serious: Yes (Hospitalization)
  Sender: FDA-Public Use
  Company Number: JP-GENENTECH-253303

PATIENT
  Age: 40 Year
  Sex: Female

DRUGS (13)
  1. BEVACIZUMAB [Suspect]
     Indication: COLON CANCER RECURRENT
     Dosage: 5 MG/KG, UNK
     Route: 041
     Dates: start: 20070809
  2. OXALIPLATIN [Suspect]
     Indication: COLON CANCER RECURRENT
     Dosage: 85 MG/M2, UNK
     Route: 041
     Dates: start: 20070809
  3. FLUOROURACIL [Suspect]
     Indication: COLON CANCER RECURRENT
     Dosage: UNK, UNK
     Route: 042
     Dates: start: 20070706
  4. ISOVORIN [Suspect]
     Indication: COLON CANCER RECURRENT
     Dosage: UNK, UNK
     Route: 041
     Dates: start: 20070706
  5. IRINOTECAN [Suspect]
     Indication: COLON CANCER RECURRENT
     Dosage: UNK, UNK
     Route: 041
  6. KYTRIL [Concomitant]
     Indication: DRUG USE FOR UNKNOWN INDICATION
     Dosage: UNK, UNK
     Dates: start: 20070809
  7. DECADRON [Concomitant]
     Indication: DRUG USE FOR UNKNOWN INDICATION
     Dosage: UNK, UNK
     Dates: start: 20070809
  8. MAGNESIUM OXIDE [Concomitant]
     Indication: DRUG USE FOR UNKNOWN INDICATION
     Dates: start: 20070809
  9. LOXOPROFEN [Concomitant]
     Indication: DRUG USE FOR UNKNOWN INDICATION
     Dates: start: 20070809
  10. PL [Concomitant]
     Indication: DRUG USE FOR UNKNOWN INDICATION
     Dates: start: 20071119
  11. BENPROPERINE [Concomitant]
     Indication: DRUG USE FOR UNKNOWN INDICATION
     Dates: start: 20071119
  12. CIPROXIN [Concomitant]
     Indication: DRUG USE FOR UNKNOWN INDICATION
     Dates: start: 20071126
  13. ZOFRAN [Concomitant]
     Indication: DRUG USE FOR UNKNOWN INDICATION
     Dosage: UNK, UNK
     Dates: start: 20071203

REACTIONS (13)
  - ABDOMINAL PAIN [None]
  - ALANINE AMINOTRANSFERASE INCREASED [None]
  - ASPARTATE AMINOTRANSFERASE INCREASED [None]
  - BLOOD ALKALINE PHOSPHATASE INCREASED [None]
  - BLOOD BILIRUBIN INCREASED [None]
  - BLOOD CREATININE INCREASED [None]
  - COLONIC STENOSIS [None]
  - DEHYDRATION [None]
  - HAEMOGLOBIN DECREASED [None]
  - INTESTINAL OBSTRUCTION [None]
  - METASTASES TO PERITONEUM [None]
  - PLATELET COUNT DECREASED [None]
  - PYREXIA [None]
